FAERS Safety Report 17247426 (Version 1)
Quarter: 2019Q4

REPORT INFORMATION
  Report Type: Spontaneous
  Country: US (occurrence: US)
  Receive Date: 20191213
  Receipt Date: 20191213
  Transmission Date: 20200122
  Serious: Yes (Other)
  Sender: FDA-Public Use
  Company Number: None

PATIENT
  Sex: Female

DRUGS (8)
  1. COTELLIC [Suspect]
     Active Substance: COBIMETINIB
     Indication: LANGERHANS^ CELL HISTIOCYTOSIS
     Dosage: ?          OTHER FREQUENCY:121 DAYS;?
     Route: 048
  2. POLYETH GLYC [Concomitant]
     Active Substance: POLYETHYLENE GLYCOLS
  3. A-HYDROCORT [Concomitant]
     Active Substance: HYDROCORTISONE SODIUM SUCCINATE
  4. SULFATRIM PD [Concomitant]
  5. ANTIFUNGAL CRE [Concomitant]
  6. MUPIROCIN. [Concomitant]
     Active Substance: MUPIROCIN
  7. NYSTATIN. [Concomitant]
     Active Substance: NYSTATIN
  8. ONDANSETRON [Concomitant]
     Active Substance: ONDANSETRON

REACTIONS (2)
  - Off label use [None]
  - Wrong technique in product usage process [None]
